FAERS Safety Report 4345241-7 (Version None)
Quarter: 2004Q2

REPORT INFORMATION
  Report Type: 
  Country: None (occurrence: None)
  Receive Date: 20040423
  Receipt Date: 20040414
  Transmission Date: 20050107
  Serious: Yes (Hospitalization)
  Sender: FDA-Public Use
  Company Number: ES-BRISTOL-MYERS SQUIBB COMPANY-12561452

PATIENT
  Age: 73 Year
  Sex: Male
  Weight: 66 kg

DRUGS (4)
  1. TAXOL [Suspect]
     Indication: NON-SMALL CELL LUNG CANCER
     Dosage: INITIAL DOSE: 02-FEB-2004
     Route: 042
     Dates: start: 20040315, end: 20040315
  2. GEMCITABINE [Suspect]
     Indication: NON-SMALL CELL LUNG CANCER
     Dosage: INITIAL DOSE: 02-FEB-2004
     Route: 042
     Dates: start: 20040315, end: 20040315
  3. ENOXAPARIN SODIUM [Concomitant]
     Dosage: VIAL
     Dates: start: 20040322, end: 20040329
  4. PREDNISONE [Concomitant]

REACTIONS (1)
  - RENAL FAILURE CHRONIC [None]
